FAERS Safety Report 15605161 (Version 5)
Quarter: 2019Q1

REPORT INFORMATION
  Report Type: Report from Study
  Country: CA (occurrence: CA)
  Receive Date: 20181112
  Receipt Date: 20190228
  Transmission Date: 20190417
  Serious: Yes (Hospitalization, Other)
  Sender: FDA-Public Use
  Company Number: CA-BRISTOL-MYERS SQUIBB COMPANY-BMS-2018-103142

PATIENT
  Sex: Female

DRUGS (1)
  1. ABATACEPT [Suspect]
     Active Substance: ABATACEPT
     Indication: RHEUMATOID ARTHRITIS
     Dosage: 1000 MG, Q4WK
     Route: 042
     Dates: start: 20181001

REACTIONS (8)
  - Arthritis infective [Recovering/Resolving]
  - Pyrexia [Unknown]
  - Cough [Unknown]
  - Bronchitis [Recovering/Resolving]
  - Musculoskeletal pain [Unknown]
  - Asthenia [Unknown]
  - Pneumonia [Recovering/Resolving]
  - Product dose omission [Unknown]
